FAERS Safety Report 7147601-8 (Version None)
Quarter: 2010Q4

REPORT INFORMATION
  Report Type: 
  Country: None (occurrence: None)
  Receive Date: 20101209
  Receipt Date: 20101129
  Transmission Date: 20110411
  Serious: No
  Sender: FDA-Public Use
  Company Number: US-BIOGENIDEC-2010BI042058

PATIENT
  Sex: Female

DRUGS (1)
  1. TYSABRI [Suspect]
     Indication: MULTIPLE SCLEROSIS
     Route: 042
     Dates: start: 20090428, end: 20090526

REACTIONS (6)
  - ASTHENIA [None]
  - CROHN'S DISEASE [None]
  - FIBROMYALGIA [None]
  - MUSCULOSKELETAL DISORDER [None]
  - TOOTH EXTRACTION [None]
  - TREMOR [None]
